FAERS Safety Report 24640654 (Version 4)
Quarter: 2025Q3

REPORT INFORMATION
  Report Type: Spontaneous
  Country: CN (occurrence: CN)
  Receive Date: 20241120
  Receipt Date: 20250802
  Transmission Date: 20251020
  Serious: Yes (Life-Threatening, Hospitalization, Other)
  Sender: ALEXION PHARMACEUTICALS
  Company Number: CN-SANOFI-02301650

PATIENT
  Age: 10 Month
  Sex: Male
  Weight: 6.5 kg

DRUGS (2)
  1. NIRSEVIMAB [Suspect]
     Active Substance: NIRSEVIMAB
     Indication: Respiratory syncytial virus immunisation
     Route: 065
  2. NIRSEVIMAB [Suspect]
     Active Substance: NIRSEVIMAB

REACTIONS (7)
  - Respiratory syncytial virus infection [Not Recovered/Not Resolved]
  - Cough [Unknown]
  - Pneumonia [Unknown]
  - Acute respiratory failure [Unknown]
  - Bronchopulmonary dysplasia [Unknown]
  - Blood immunoglobulin G decreased [Unknown]
  - Drug ineffective [Unknown]

NARRATIVE: CASE EVENT DATE: 20241101
